FAERS Safety Report 4961067-5 (Version None)
Quarter: 2006Q1

REPORT INFORMATION
  Report Type: 
  Country: None (occurrence: None)
  Receive Date: 20060327
  Receipt Date: 20060321
  Transmission Date: 20060701
  Serious: Yes (Death, Other)
  Sender: FDA-Public Use
  Company Number: 200610825BWH

PATIENT
  Age: 65 Year
  Sex: Male
  Weight: 122.0176 kg

DRUGS (12)
  1. NEXAVAR [Suspect]
     Indication: METASTATIC RENAL CELL CARCINOMA
     Dosage: 400 MG, ONCE, ORAL
     Route: 048
     Dates: start: 20060210
  2. DEXAMETHASONE [Concomitant]
  3. MAGACE [Concomitant]
  4. PHENERGAN HCL [Concomitant]
  5. TAZTIA XT [Concomitant]
  6. LIPITOR [Concomitant]
  7. AVALIDE [Concomitant]
  8. TEMAZEPAM [Concomitant]
  9. HYDROCODONE [Concomitant]
  10. COMPAZINE [Concomitant]
  11. DECADRON [Concomitant]
  12. ZOMETA [Concomitant]

REACTIONS (10)
  - ALANINE AMINOTRANSFERASE INCREASED [None]
  - ARRHYTHMIA [None]
  - ASPARTATE AMINOTRANSFERASE INCREASED [None]
  - CARDIOVASCULAR DISORDER [None]
  - HEART SOUNDS ABNORMAL [None]
  - HYPERTENSIVE HEART DISEASE [None]
  - MALIGNANT NEOPLASM PROGRESSION [None]
  - METASTATIC RENAL CELL CARCINOMA [None]
  - MYOCARDIAL INFARCTION [None]
  - OEDEMA PERIPHERAL [None]
